FAERS Safety Report 5716571-9 (Version None)
Quarter: 2008Q2

REPORT INFORMATION
  Report Type: 
  Country: None (occurrence: None)
  Receive Date: 20080424
  Receipt Date: 20080421
  Transmission Date: 20081010
  Serious: Yes (Death)
  Sender: FDA-Public Use
  Company Number: DE-SANOFI-SYNTHELABO-F04200800031

PATIENT
  Sex: Male

DRUGS (3)
  1. ELOXATIN [Suspect]
     Indication: RECTAL CANCER
     Route: 041
     Dates: start: 20040601, end: 20040601
  2. IRINOTECAN HCL [Suspect]
     Indication: RECTAL CANCER
     Route: 041
     Dates: start: 20040601, end: 20040601
  3. CAPECITABINE [Suspect]
     Indication: RECTAL CANCER
     Route: 048
     Dates: start: 20040101, end: 20040601

REACTIONS (1)
  - DEATH [None]
